FAERS Safety Report 16255404 (Version 8)
Quarter: 2020Q1

REPORT INFORMATION
  Report Type: Report from Study
  Country: None (occurrence: NL)
  Receive Date: 20190430
  Receipt Date: 20200120
  Transmission Date: 20200409
  Serious: Yes (Hospitalization, Other)
  Sender: FDA-Public Use
  Company Number: NL-ABBVIE-19S-114-2741947-00

PATIENT
  Sex: Female
  Weight: 93 kg

DRUGS (4)
  1. DUODOPA [Suspect]
     Active Substance: CARBIDOPA\LEVODOPA
     Indication: PARKINSON^S DISEASE
     Dosage: MD: 11.0, CD: 5.0, ED: 1.8, CND: 2.7?24 HOUR ADMINISTRATION
     Route: 050
     Dates: start: 20150323
  2. DUODOPA [Suspect]
     Active Substance: CARBIDOPA\LEVODOPA
     Dosage: DAY PUMP: MD 11.0 ML; CD 5.6 ML/HR; ED 1.7 ML, NIGHT PUMP: CD 3.5 ML/HR; ED 1.7
     Route: 050
  3. DUODOPA [Suspect]
     Active Substance: CARBIDOPA\LEVODOPA
     Dosage: MD: 11.0, CD: 5.1, CND: 2.8 ML/HR
     Route: 050
  4. SIFROL [Concomitant]
     Active Substance: PRAMIPEXOLE
     Indication: PARKINSON^S DISEASE
     Dosage: ONCE A DAY IN THE EVENING

REACTIONS (22)
  - Erysipelas [Recovered/Resolved]
  - Dyskinesia [Not Recovered/Not Resolved]
  - Hallucination [Not Recovered/Not Resolved]
  - Cervical spinal stenosis [Unknown]
  - Hypoaesthesia [Unknown]
  - Fatigue [Not Recovered/Not Resolved]
  - Memory impairment [Unknown]
  - Erythema [Not Recovered/Not Resolved]
  - Muscle rigidity [Not Recovered/Not Resolved]
  - On and off phenomenon [Unknown]
  - Intervertebral disc protrusion [Recovered/Resolved]
  - Thrombosis [Not Recovered/Not Resolved]
  - Myelopathy [Unknown]
  - Peripheral swelling [Not Recovered/Not Resolved]
  - Gait disturbance [Not Recovered/Not Resolved]
  - Intentional product use issue [Unknown]
  - Cervical spinal stenosis [Recovering/Resolving]
  - Dysstasia [Not Recovered/Not Resolved]
  - Dystonia [Not Recovered/Not Resolved]
  - Hypokinesia [Not Recovered/Not Resolved]
  - Muscular weakness [Unknown]
  - Pyramidal tract syndrome [Unknown]
